FAERS Safety Report 12639534 (Version 1)
Quarter: 2016Q3

REPORT INFORMATION
  Report Type: Spontaneous
  Country: US (occurrence: US)
  Receive Date: 20160810
  Receipt Date: 20160810
  Transmission Date: 20161109
  Serious: No
  Sender: FDA-Public Use
  Company Number: US-BIOGEN-2016BI00276009

PATIENT
  Sex: Female
  Weight: 81.72 kg

DRUGS (1)
  1. TECFIDERA [Suspect]
     Active Substance: DIMETHYL FUMARATE
     Indication: MULTIPLE SCLEROSIS
     Route: 065

REACTIONS (4)
  - Multiple sclerosis relapse [Unknown]
  - Gastrointestinal disorder [Unknown]
  - Drug intolerance [Unknown]
  - Headache [Unknown]
